FAERS Safety Report 6535870-4 (Version None)
Quarter: 2010Q1

REPORT INFORMATION
  Report Type: 
  Country: None (occurrence: None)
  Receive Date: 20100113
  Receipt Date: 20100106
  Transmission Date: 20100710
  Serious: Yes (Hospitalization, Other)
  Sender: FDA-Public Use
  Company Number: US-JNJFOC-20100102493

PATIENT
  Sex: Male
  Weight: 136.08 kg

DRUGS (6)
  1. DURAGESIC-100 [Suspect]
     Indication: PAIN
     Route: 062
  2. DURAGESIC-100 [Suspect]
     Route: 062
  3. LEXAPRO [Concomitant]
     Indication: MOOD SWINGS
     Route: 048
  4. AMITRIPTYLINE [Concomitant]
     Indication: DEPRESSION
     Route: 048
  5. METOPROLOL [Concomitant]
     Indication: CARDIAC DISORDER
     Route: 048
  6. KEPPRA [Concomitant]
     Indication: CARDIAC DISORDER
     Route: 048

REACTIONS (5)
  - ARTHRALGIA [None]
  - BLOOD COUNT ABNORMAL [None]
  - DRUG INEFFECTIVE [None]
  - HEART RATE INCREASED [None]
  - ULCER HAEMORRHAGE [None]
